FAERS Safety Report 18145763 (Version 2)
Quarter: 2020Q3

REPORT INFORMATION
  Report Type: Report from Study
  Country: JP (occurrence: JP)
  Receive Date: 20200813
  Receipt Date: 20200924
  Transmission Date: 20201103
  Serious: Yes (Hospitalization)
  Sender: FDA-Public Use
  Company Number: JP-ASTRAZENECA-2020SF00302

PATIENT
  Age: 26702 Day
  Sex: Female
  Weight: 43 kg

DRUGS (12)
  1. NEXIUM CAPSULES 20MG [Concomitant]
     Indication: GASTROOESOPHAGEAL REFLUX DISEASE
     Route: 048
     Dates: start: 20200310, end: 20200831
  2. ATORVASTATIN [Concomitant]
     Active Substance: ATORVASTATIN
     Indication: DYSLIPIDAEMIA
     Route: 048
     Dates: start: 20200310
  3. TAGRISSO [Suspect]
     Active Substance: OSIMERTINIB
     Indication: NON-SMALL CELL LUNG CANCER
     Route: 048
     Dates: start: 20200403, end: 20200720
  4. DOXAZOSIN [Concomitant]
     Active Substance: DOXAZOSIN MESYLATE
     Indication: HYPERTENSION
     Route: 048
     Dates: start: 20200310
  5. REBAMIPIDE [Concomitant]
     Active Substance: REBAMIPIDE
     Indication: ABDOMINAL DISCOMFORT
     Route: 048
     Dates: start: 20200310
  6. OXINORM [Concomitant]
     Indication: PAIN
     Dosage: 2.5 MG WHEN PAIN DEVELOPED
     Route: 048
     Dates: start: 20200327
  7. TAGRISSO [Suspect]
     Active Substance: OSIMERTINIB
     Indication: NON-SMALL CELL LUNG CANCER
     Route: 048
     Dates: start: 20200911
  8. LOXOPROFEN NA [Concomitant]
     Active Substance: LOXOPROFEN SODIUM
     Indication: PAIN
     Route: 048
     Dates: start: 20200310
  9. LOPERAMIDE HYDROCHLORIDE. [Concomitant]
     Active Substance: LOPERAMIDE HYDROCHLORIDE
     Indication: DIARRHOEA
     Dosage: 1MG WHEN DIARRHOEA DEVELOPED
     Route: 048
     Dates: start: 20200310
  10. DESALEX [Concomitant]
     Active Substance: DESLORATADINE
     Indication: EOSINOPHIL COUNT INCREASED
     Route: 048
     Dates: start: 20200410, end: 20200802
  11. MIYA?BM [Concomitant]
     Active Substance: CLOSTRIDIUM BUTYRICUM SPORES STRAIN M-55
     Indication: GASTROINTESTINAL DISORDER
     Route: 048
     Dates: start: 20200310, end: 20200804
  12. NOVAMIN [Concomitant]
     Indication: VOMITING
     Dosage: 5.0MG AS REQUIRED
     Route: 048
     Dates: start: 20200327

REACTIONS (2)
  - Lung disorder [Recovering/Resolving]
  - Off label use [Unknown]

NARRATIVE: CASE EVENT DATE: 20200720
